FAERS Safety Report 17454621 (Version 1)
Quarter: 2020Q1

REPORT INFORMATION
  Report Type: Spontaneous
  Country: US (occurrence: US)
  Receive Date: 20200225
  Receipt Date: 20200225
  Transmission Date: 20200409
  Serious: No
  Sender: FDA-Public Use
  Company Number: US-JNJFOC-20200151981

PATIENT
  Age: 66 Year
  Sex: Male
  Weight: 79.45 kg

DRUGS (1)
  1. TYLENOL 8 HR ARTHRITIS PAIN [Suspect]
     Active Substance: ACETAMINOPHEN
     Indication: ARTHRALGIA
     Dosage: TAKE 1 PILL ONLY THIS MORNING AND TOOK 1 PILL 5 MINUTE EARLIER
     Route: 048
     Dates: start: 20200130

REACTIONS (2)
  - Incorrect dose administered [Unknown]
  - Malaise [Unknown]

NARRATIVE: CASE EVENT DATE: 20200130
